FAERS Safety Report 7550116-6 (Version None)
Quarter: 2011Q2

REPORT INFORMATION
  Report Type: 
  Country: None (occurrence: None)
  Receive Date: 20110615
  Receipt Date: 20110607
  Transmission Date: 20111010
  Serious: Yes (Other)
  Sender: FDA-Public Use
  Company Number: LB-B.I. PHARMACEUTICALS,INC./RIDGEFIELD-2011-DE-03492GD

PATIENT
  Age: 78 Year
  Sex: Male
  Weight: 80 kg

DRUGS (8)
  1. ESMOPRAZOLE [Concomitant]
  2. AMANTADINE HCL [Concomitant]
  3. DUTASTERIDE [Concomitant]
  4. TAMSULOSIN HCL [Concomitant]
  5. AMLODIPINE [Concomitant]
  6. DABIGATRAN ETEXILATE [Suspect]
     Indication: PROPHYLAXIS
     Dosage: 220 MG
  7. TRIMETAZIDINE [Concomitant]
  8. ROSUVASTATIN [Concomitant]

REACTIONS (1)
  - ATRIAL THROMBOSIS [None]
